FAERS Safety Report 24005291 (Version 2)
Quarter: 2024Q3

REPORT INFORMATION
  Report Type: Report from Study
  Country: MX (occurrence: MX)
  Receive Date: 20240624
  Receipt Date: 20240717
  Transmission Date: 20241016
  Serious: Yes (Hospitalization)
  Sender: NOVARTIS
  Company Number: MX-002147023-NVSC2024MX093400

PATIENT
  Age: 37 Year
  Sex: Female
  Weight: 68 kg

DRUGS (2)
  1. KISQALI [Suspect]
     Active Substance: RIBOCICLIB
     Indication: Breast cancer
     Dosage: 600 MG, QD (2X300) (3 DOSAGE)
     Route: 048
     Dates: start: 202204
  2. ZOLEDRONIC ACID [Suspect]
     Active Substance: ZOLEDRONIC ACID
     Indication: Product used for unknown indication
     Dosage: UNK
     Route: 065
     Dates: start: 202404

REACTIONS (11)
  - Malaise [Recovering/Resolving]
  - Liver disorder [Unknown]
  - Stress [Unknown]
  - Emotional disorder [Unknown]
  - Bone pain [Unknown]
  - Psoriasis [Unknown]
  - Decreased immune responsiveness [Recovering/Resolving]
  - Anxiety [Unknown]
  - General physical health deterioration [Unknown]
  - Weight decreased [Unknown]
  - Muscle mass [Unknown]

NARRATIVE: CASE EVENT DATE: 20240601
